FAERS Safety Report 8169093-2 (Version None)
Quarter: 2012Q1

REPORT INFORMATION
  Report Type: 
  Country: None (occurrence: None)
  Receive Date: 20120227
  Receipt Date: 20120217
  Transmission Date: 20120608
  Serious: Yes (Hospitalization)
  Sender: FDA-Public Use
  Company Number: BR-ASTRAZENECA-2012SE11210

PATIENT
  Age: 91 Year
  Sex: Female

DRUGS (6)
  1. SERTRALINE HYDROCHLORORIDE [Concomitant]
     Route: 048
     Dates: start: 20060101
  2. LOSARTAN POTASSIUM [Concomitant]
     Indication: HYPERTENSION
     Route: 048
     Dates: start: 20110101
  3. FELODIPINE [Suspect]
     Indication: HYPERTENSION
     Route: 048
     Dates: start: 20110101, end: 20111201
  4. SOMALGIN CARDIO [Concomitant]
     Route: 048
  5. FELODIPINE [Suspect]
     Route: 048
  6. ISOSORBIDE MONONITRATE [Concomitant]
     Route: 048

REACTIONS (3)
  - BLOOD PRESSURE INCREASED [None]
  - CHOLELITHIASIS [None]
  - WEIGHT DECREASED [None]
